FAERS Safety Report 6274102-1 (Version None)
Quarter: 2009Q3

REPORT INFORMATION
  Report Type: 
  Country: None (occurrence: None)
  Receive Date: 20090720
  Receipt Date: 20090708
  Transmission Date: 20100115
  Serious: Yes (Other)
  Sender: FDA-Public Use
  Company Number: PHHY2009FR28349

PATIENT
  Age: 65 Year
  Sex: Male

DRUGS (4)
  1. LESCOL [Suspect]
     Indication: HYPERCHOLESTEROLAEMIA
     Dosage: 1 DF, QD
     Route: 065
     Dates: start: 20060101
  2. KARDEGIC [Concomitant]
  3. DILTIAZEM [Concomitant]
  4. RENITEC [Concomitant]

REACTIONS (7)
  - CD8 LYMPHOCYTES [None]
  - COLLAGEN DISORDER [None]
  - DYSPNOEA [None]
  - FATIGUE [None]
  - INTERSTITIAL LUNG DISEASE [None]
  - LUNG DISORDER [None]
  - LUNG INFILTRATION [None]
